FAERS Safety Report 24323225 (Version 1)
Quarter: 2024Q3

REPORT INFORMATION
  Report Type: Report from Study
  Country: JP (occurrence: JP)
  Receive Date: 20240916
  Receipt Date: 20240916
  Transmission Date: 20241017
  Serious: Yes (Other)
  Sender: EXELIXIS
  Company Number: JP-TAKEDA-2024TJP013277

PATIENT
  Age: 65 Year
  Sex: Female
  Weight: 54.1 kg

DRUGS (1)
  1. CABOMETYX [Suspect]
     Active Substance: CABOZANTINIB S-MALATE
     Indication: Hepatocellular carcinoma
     Dosage: 20 MG
     Dates: start: 20240207, end: 20240402

REACTIONS (3)
  - Ascites [Unknown]
  - Hypothyroidism [Unknown]
  - Protein urine [Unknown]

NARRATIVE: CASE EVENT DATE: 20240402
